FAERS Safety Report 5738845-8 (Version None)
Quarter: 2008Q2

REPORT INFORMATION
  Report Type: 
  Country: None (occurrence: None)
  Receive Date: 20080515
  Receipt Date: 20080410
  Transmission Date: 20081010
  Serious: No
  Sender: FDA-Public Use
  Company Number: A0722133A

PATIENT
  Age: 78 Year
  Sex: Male

DRUGS (7)
  1. VERAMYST [Suspect]
     Dosage: 2SPR PER DAY
     Route: 045
     Dates: start: 20070913
  2. COUMADIN [Concomitant]
  3. TRIAMTEREN + HYDROCHLOROTHIAZIDE [Concomitant]
  4. FLOMAX [Concomitant]
  5. FOLTX [Concomitant]
  6. FEXOFENADINE HCL [Concomitant]
  7. VITAMINS [Concomitant]

REACTIONS (1)
  - EPISTAXIS [None]
